FAERS Safety Report 18793410 (Version 1)
Quarter: 2021Q1

REPORT INFORMATION
  Report Type: Spontaneous
  Country: US (occurrence: US)
  Receive Date: 20210127
  Receipt Date: 20210127
  Transmission Date: 20210419
  Serious: Yes (Other)
  Sender: FDA-Public Use
  Company Number: US-DRREDDYS-USA/USA/21/0131259

PATIENT
  Age: 26 Year
  Sex: Female

DRUGS (1)
  1. ZENATANE [Suspect]
     Active Substance: ISOTRETINOIN
     Indication: PRODUCT USED FOR UNKNOWN INDICATION
     Dosage: RMA ISSUE DATE: 9/8/2020 8:01:07 AM, 10/10/2020 3:32:40 PM, 11/12/2020 9:29:17 AM, 12/16/2020 8:51:1
     Route: 048
     Dates: start: 20200908, end: 20210116

REACTIONS (1)
  - Exposure during pregnancy [Unknown]
